FAERS Safety Report 5872133-4 (Version None)
Quarter: 2008Q3

REPORT INFORMATION
  Report Type: 
  Country: None (occurrence: None)
  Receive Date: 20080905
  Receipt Date: 20080828
  Transmission Date: 20090109
  Serious: Yes (Other)
  Sender: FDA-Public Use
  Company Number: FR-AMGEN-US305447

PATIENT
  Sex: Male

DRUGS (1)
  1. ENBREL [Suspect]
     Indication: ANKYLOSING SPONDYLITIS
     Dosage: LYOPHILIZED : 25 MG TWICE A WEEK
     Route: 058
     Dates: start: 20020101

REACTIONS (9)
  - FATIGUE [None]
  - INJECTION SITE IRRITATION [None]
  - INJECTION SITE PAIN [None]
  - PAIN IN JAW [None]
  - PHARMACEUTICAL PRODUCT COMPLAINT [None]
  - PULPITIS DENTAL [None]
  - TOOTH LOSS [None]
  - URTICARIA [None]
  - WEIGHT INCREASED [None]
